FAERS Safety Report 15895667 (Version 1)
Quarter: 2019Q1

REPORT INFORMATION
  Report Type: Other
  Country: SE (occurrence: SE)
  Receive Date: 20190131
  Receipt Date: 20190131
  Transmission Date: 20190417
  Serious: Yes (Life-Threatening, Hospitalization)
  Sender: FDA-Public Use
  Company Number: SE-COLLEGIUM PHARMACEUTICAL, INC.-SE-2019COL000085

PATIENT
  Age: 31 Year
  Sex: Female

DRUGS (3)
  1. TAPENTADOL EXTENDED RELEASE [Suspect]
     Active Substance: TAPENTADOL
     Indication: SPINAL OPERATION
     Dosage: 150 MG, QD
  2. TRAMADOL HYDROCHLORIDE. [Suspect]
     Active Substance: TRAMADOL HYDROCHLORIDE
     Indication: PRODUCT USED FOR UNKNOWN INDICATION
     Dosage: UNK
  3. DOLCONTIN                          /00036302/ [Suspect]
     Active Substance: MORPHINE
     Indication: SURGERY
     Dosage: 5 MG, BID

REACTIONS (7)
  - Muscle spasms [Not Recovered/Not Resolved]
  - Urticaria [Not Recovered/Not Resolved]
  - Anaphylactic shock [Unknown]
  - Dyspnoea [Unknown]
  - Hypotension [Unknown]
  - Bladder pain [Not Recovered/Not Resolved]
  - Drug hypersensitivity [Not Recovered/Not Resolved]

NARRATIVE: CASE EVENT DATE: 201503
